FAERS Safety Report 10841351 (Version 1)
Quarter: 2015Q1

REPORT INFORMATION
  Report Type: Spontaneous
  Country: US (occurrence: BR)
  Receive Date: 20150220
  Receipt Date: 20150220
  Transmission Date: 20150721
  Serious: No
  Sender: FDA-Public Use
  Company Number: US-TEVA-473105USA

PATIENT
  Sex: Female

DRUGS (2)
  1. TAMOXIFEN CITRATE. [Suspect]
     Active Substance: TAMOXIFEN CITRATE
  2. TAMOXIFEN [Suspect]
     Active Substance: TAMOXIFEN

REACTIONS (2)
  - Amenorrhoea [Recovered/Resolved]
  - Malaise [Recovered/Resolved]
